FAERS Safety Report 5507908-4 (Version None)
Quarter: 2007Q4

REPORT INFORMATION
  Report Type: 
  Country: None (occurrence: None)
  Receive Date: 20071106
  Receipt Date: 20071025
  Transmission Date: 20080405
  Serious: Yes (Hospitalization)
  Sender: FDA-Public Use
  Company Number: US-PFIZER INC-2007046045

PATIENT
  Sex: Male
  Weight: 83 kg

DRUGS (9)
  1. NORVASC [Suspect]
     Indication: HYPERTENSION
     Route: 048
  2. NORVASC [Suspect]
     Route: 048
     Dates: start: 20070531, end: 20070604
  3. NORVASC [Suspect]
     Route: 048
  4. SU-011,248 [Suspect]
     Indication: METASTATIC RENAL CELL CARCINOMA
     Route: 048
  5. SU-011,248 [Suspect]
     Route: 048
  6. ASPIRIN [Concomitant]
     Indication: PROPHYLAXIS
     Route: 048
     Dates: end: 20070604
  7. VALSARTAN [Concomitant]
     Indication: HYPERTENSION
     Route: 048
  8. ZOLOFT [Concomitant]
     Indication: DEPRESSION
     Route: 048
  9. VITAMIN CAP [Concomitant]
     Indication: PROPHYLAXIS
     Route: 048

REACTIONS (3)
  - EPISTAXIS [None]
  - GASTRODUODENITIS [None]
  - VIRAL INFECTION [None]
